FAERS Safety Report 4970076-1 (Version None)
Quarter: 2006Q2

REPORT INFORMATION
  Report Type: 
  Country: None (occurrence: None)
  Receive Date: 20060406
  Receipt Date: 20060327
  Transmission Date: 20061013
  Serious: Yes (Death)
  Sender: FDA-Public Use
  Company Number: 2006-140338-NL

PATIENT
  Age: 47 Year
  Sex: Male

DRUGS (5)
  1. MIRTAZAPINE [Suspect]
     Dosage: 45 MG QD ORAL
     Route: 048
     Dates: start: 20060301, end: 20060313
  2. ESZOPICLONE [Suspect]
     Dosage: 1.5 MG BID ORAL
     Route: 048
     Dates: start: 20060301, end: 20060313
  3. OLANZAPINE [Concomitant]
  4. TRAMADOL HCL [Concomitant]
  5. ZOLPIDEM TARTRATE [Concomitant]

REACTIONS (1)
  - DEATH [None]
